FAERS Safety Report 4801744-X (Version None)
Quarter: 2005Q4

REPORT INFORMATION
  Report Type: 
  Country: None (occurrence: None)
  Receive Date: 20051018
  Receipt Date: 20051010
  Transmission Date: 20060501
  Serious: Yes (Other)
  Sender: FDA-Public Use
  Company Number: PT-JNJFOC-20050905925

PATIENT
  Age: 33 Year
  Sex: Female

DRUGS (2)
  1. REMICADE [Suspect]
     Indication: CROHN'S DISEASE
     Dosage: TOTAL OF 4 INFUSIONS. WEEK 0,2,6 AND 14.
     Route: 042
  2. AZATHIOPRINE [Concomitant]
     Indication: CROHN'S DISEASE

REACTIONS (4)
  - CANDIDIASIS [None]
  - DISEASE RECURRENCE [None]
  - FUNGAL SKIN INFECTION [None]
  - OTITIS EXTERNA [None]
